FAERS Safety Report 5893677-5 (Version None)
Quarter: 2008Q3

REPORT INFORMATION
  Report Type: 
  Country: None (occurrence: None)
  Receive Date: 20080923
  Receipt Date: 20071010
  Transmission Date: 20090109
  Serious: No
  Sender: FDA-Public Use
  Company Number: US-ASTRAZENECA-2007UW23617

PATIENT
  Age: 40 Year
  Sex: Female

DRUGS (3)
  1. SEROQUEL [Suspect]
     Route: 048
  2. OXYCODONE HCL [Concomitant]
  3. CLONAPINE [Concomitant]

REACTIONS (2)
  - AMNESIA [None]
  - FEELING ABNORMAL [None]
